FAERS Safety Report 22272790 (Version 1)
Quarter: 2023Q2

REPORT INFORMATION
  Report Type: Spontaneous
  Country: AR (occurrence: AR)
  Receive Date: 20230502
  Receipt Date: 20230502
  Transmission Date: 20230722
  Serious: Yes (Other)
  Sender: FDA-Public Use
  Company Number: AR-SUN PHARMACEUTICAL INDUSTRIES LTD-2023R1-385965

PATIENT
  Age: 15 Year
  Sex: Male

DRUGS (4)
  1. EPINEPHRINE [Suspect]
     Active Substance: EPINEPHRINE
     Indication: General anaesthesia
     Dosage: UNK 0.6 GAMMA/KG
     Route: 065
  2. NOREPINEPHRINE [Suspect]
     Active Substance: NOREPINEPHRINE
     Indication: General anaesthesia
     Dosage: UNK 0.4/KG
     Route: 065
  3. VASOPRESSIN [Suspect]
     Active Substance: VASOPRESSIN
     Indication: General anaesthesia
     Dosage: UNK 0.007/KG
     Route: 065
  4. DOPAMINE [Suspect]
     Active Substance: DOPAMINE HYDROCHLORIDE
     Indication: General anaesthesia
     Dosage: UNK 16 GAMMA
     Route: 065

REACTIONS (1)
  - Drug ineffective [Unknown]
